FAERS Safety Report 19841573 (Version 2)
Quarter: 2021Q3

REPORT INFORMATION
  Report Type: Spontaneous
  Country: FR (occurrence: FR)
  Receive Date: 20210916
  Receipt Date: 20210917
  Transmission Date: 20211014
  Serious: Yes (Hospitalization, Other)
  Sender: FDA-Public Use
  Company Number: FR-PFIZER INC-202101154815

PATIENT
  Age: 72 Year
  Sex: Female

DRUGS (12)
  1. TERCIAN [CYAMEMAZINE] [Suspect]
     Active Substance: CYAMEMAZINE
     Indication: SCHIZOPHRENIA
     Dosage: UNK
     Route: 048
     Dates: start: 2018
  2. IZALGI [Suspect]
     Active Substance: ACETAMINOPHEN\OPIUM
     Indication: PAIN
     Dosage: UNK
     Route: 048
     Dates: start: 202106
  3. SERTRALINE HCL [Suspect]
     Active Substance: SERTRALINE HYDROCHLORIDE
     Indication: BIPOLAR DISORDER
     Dosage: UNK
     Route: 048
     Dates: start: 202103
  4. PRAZEPAM [Suspect]
     Active Substance: PRAZEPAM
     Indication: ANXIETY
     Dosage: UNK
     Route: 048
     Dates: start: 2016
  5. DEPAMIDE [Suspect]
     Active Substance: VALPROMIDE
     Indication: BIPOLAR DISORDER
     Dosage: UNK
     Route: 048
     Dates: start: 2018
  6. QUETIAPINE [QUETIAPINE FUMARATE] [Suspect]
     Active Substance: QUETIAPINE FUMARATE
     Indication: SCHIZOPHRENIA
     Dosage: UNK
     Route: 048
     Dates: start: 2018
  7. ZOPICLONE [Suspect]
     Active Substance: ZOPICLONE
     Indication: SLEEP DISORDER
     Dosage: UNK
     Route: 048
     Dates: start: 2018
  8. QUETIAPINE [QUETIAPINE FUMARATE] [Suspect]
     Active Substance: QUETIAPINE FUMARATE
     Indication: BIPOLAR DISORDER
  9. LITHIUM CARBONATE. [Suspect]
     Active Substance: LITHIUM CARBONATE
     Indication: BIPOLAR DISORDER
     Dosage: UNK
     Route: 048
     Dates: start: 2018
  10. PANTOPRAZOLE [Suspect]
     Active Substance: PANTOPRAZOLE
     Dosage: UNK
     Route: 048
     Dates: start: 202106
  11. ALPRAZOLAM. [Suspect]
     Active Substance: ALPRAZOLAM
     Indication: ANXIETY
     Dosage: UNK
     Route: 048
     Dates: start: 2021
  12. HALOPERIDOL. [Suspect]
     Active Substance: HALOPERIDOL
     Indication: SCHIZOPHRENIA
     Dosage: UNK
     Route: 048
     Dates: start: 2018

REACTIONS (4)
  - Thrombocytopenia [Not Recovered/Not Resolved]
  - Condition aggravated [Not Recovered/Not Resolved]
  - Lymphopenia [Not Recovered/Not Resolved]
  - Off label use [Unknown]

NARRATIVE: CASE EVENT DATE: 202103
